FAERS Safety Report 5380783-7 (Version None)
Quarter: 2007Q3

REPORT INFORMATION
  Report Type: 
  Country: None (occurrence: None)
  Receive Date: 20070706
  Receipt Date: 20070703
  Transmission Date: 20080115
  Serious: Yes (Hospitalization)
  Sender: FDA-Public Use
  Company Number: B0476505A

PATIENT
  Sex: Male
  Weight: 3.73 kg

DRUGS (2)
  1. PAXIL [Suspect]
     Indication: DRUG USE FOR UNKNOWN INDICATION
     Dosage: 40MG PER DAY
     Dates: start: 20050701, end: 20060905
  2. LEXOTAN [Concomitant]
     Indication: DRUG USE FOR UNKNOWN INDICATION
     Dosage: 2MG THREE TIMES PER DAY
     Dates: start: 20011101, end: 20060301

REACTIONS (2)
  - DRUG EXPOSURE DURING PREGNANCY [None]
  - TACHYPNOEA [None]
